FAERS Safety Report 9283686 (Version 2)
Quarter: 2013Q2

REPORT INFORMATION
  Report Type: Spontaneous
  Country: US (occurrence: US)
  Receive Date: 20130510
  Receipt Date: 20130625
  Transmission Date: 20140414
  Serious: Yes (Death)
  Sender: FDA-Public Use
  Company Number: US-GLAXOSMITHKLINE-A1022667A

PATIENT
  Sex: Male

DRUGS (1)
  1. MEPRON [Suspect]
     Indication: PRODUCT USED FOR UNKNOWN INDICATION
     Dosage: 750MG UNKNOWN
     Route: 065

REACTIONS (1)
  - Brain neoplasm malignant [Fatal]
